FAERS Safety Report 5818576-6 (Version None)
Quarter: 2008Q3

REPORT INFORMATION
  Report Type: 
  Country: None (occurrence: None)
  Receive Date: 20080717
  Receipt Date: 20080708
  Transmission Date: 20090109
  Serious: Yes (Disabling)
  Sender: FDA-Public Use
  Company Number: 163-21880-08031761

PATIENT
  Age: 48 Year
  Sex: Male

DRUGS (4)
  1. REVLIMID [Suspect]
     Indication: MULTIPLE MYELOMA
     Dosage: 25 MG, DAILY X21 DAYS/28, ORAL, 10 MG, DAILY X21 DAYS/28, ORAL
     Route: 048
     Dates: start: 20071129, end: 20080211
  2. REVLIMID [Suspect]
     Indication: MULTIPLE MYELOMA
     Dosage: 25 MG, DAILY X21 DAYS/28, ORAL, 10 MG, DAILY X21 DAYS/28, ORAL
     Route: 048
     Dates: start: 20080218, end: 20080317
  3. DEXAMETHASONE TAB [Suspect]
     Indication: DRUG USE FOR UNKNOWN INDICATION
     Dates: start: 20071004, end: 20080630
  4. WARFARIN SODIUM [Concomitant]

REACTIONS (1)
  - ENTEROCOLITIS HAEMORRHAGIC [None]
